FAERS Safety Report 7218210-7 (Version None)
Quarter: 2011Q1

REPORT INFORMATION
  Report Type: 
  Country: None (occurrence: None)
  Receive Date: 20110110
  Receipt Date: 20080414
  Transmission Date: 20110831
  Serious: Yes (Hospitalization)
  Sender: FDA-Public Use
  Company Number: PHRM2008FR01277

PATIENT
  Sex: Male

DRUGS (9)
  1. PROPOFAN /01607901/ [Concomitant]
     Indication: PAIN
  2. FUROSEMIDE [Suspect]
     Indication: HYPERTENSION
     Dosage: 40 MG, QD
     Route: 048
     Dates: start: 20071217, end: 20080321
  3. PERCUTALGINE [Suspect]
     Indication: TENDONITIS
     Route: 061
     Dates: start: 20080227, end: 20080306
  4. ESOMEPRAZOLE [Concomitant]
  5. SYMBICORT [Suspect]
     Dosage: 2 DF, BID
  6. VALSARTAN  AND HYDROCHLOROTHIAZIDE [Suspect]
     Indication: HYPERTENSION
     Dosage: 80 MG VALS/12.5 MG HCT/DAY
     Route: 048
     Dates: end: 20080322
  7. VALSARTAN  AND HYDROCHLOROTHIAZIDE [Suspect]
     Dates: start: 20080324
  8. SOLUPRED [Suspect]
     Indication: TENDONITIS
     Dosage: 40 MG, QD
     Route: 048
     Dates: start: 20080227, end: 20080306
  9. SYMBICORT [Suspect]
     Dates: start: 20080324

REACTIONS (7)
  - FACE INJURY [None]
  - ATRIOVENTRICULAR BLOCK FIRST DEGREE [None]
  - ORTHOSTATIC HYPOTENSION [None]
  - SYNCOPE [None]
  - HEART RATE DECREASED [None]
  - BUNDLE BRANCH BLOCK RIGHT [None]
  - HYPOKALAEMIA [None]
